FAERS Safety Report 5509534-X (Version None)
Quarter: 2007Q4

REPORT INFORMATION
  Report Type: 
  Country: None (occurrence: None)
  Receive Date: 20071029
  Receipt Date: 20070712
  Transmission Date: 20080405
  Serious: No
  Sender: FDA-Public Use
  Company Number: 012798

PATIENT
  Age: 84 Year
  Sex: Female

DRUGS (8)
  1. PRIALT [Suspect]
     Indication: NEUROPATHY PERIPHERAL
     Dosage: SEE IMAGE
     Route: 037
     Dates: start: 20060101, end: 20060101
  2. PRIALT [Suspect]
     Indication: NEUROPATHY PERIPHERAL
     Dosage: SEE IMAGE
     Route: 037
     Dates: start: 20060101, end: 20060101
  3. PRIALT [Suspect]
     Indication: NEUROPATHY PERIPHERAL
     Dosage: SEE IMAGE
     Route: 037
     Dates: start: 20060913, end: 20060101
  4. PRIALT [Suspect]
     Indication: NEUROPATHY PERIPHERAL
     Dosage: SEE IMAGE
     Route: 037
     Dates: start: 20061001, end: 20060101
  5. PRIALT [Suspect]
     Indication: NEUROPATHY PERIPHERAL
     Dosage: SEE IMAGE
     Route: 037
     Dates: start: 20060101, end: 20070328
  6. FENTANYL [Concomitant]
  7. BUPIVACAINE [Concomitant]
  8. PAXIL [Concomitant]

REACTIONS (13)
  - CHOKING SENSATION [None]
  - DISORIENTATION [None]
  - DYSGEUSIA [None]
  - GAIT DISTURBANCE [None]
  - HALLUCINATION [None]
  - INSOMNIA [None]
  - MUSCLE SPASMS [None]
  - ORAL DISCHARGE [None]
  - ORAL PAIN [None]
  - PALPITATIONS [None]
  - PARAESTHESIA ORAL [None]
  - RECTAL DISCHARGE [None]
  - WEIGHT DECREASED [None]
